FAERS Safety Report 6423516-5 (Version None)
Quarter: 2009Q4

REPORT INFORMATION
  Report Type: 
  Country: None (occurrence: None)
  Receive Date: 20091028
  Receipt Date: 20091022
  Transmission Date: 20100525
  Serious: Yes (Hospitalization)
  Sender: FDA-Public Use
  Company Number: 2008SP026062

PATIENT
  Age: 35 Year
  Sex: Male
  Weight: 75 kg

DRUGS (4)
  1. PEG-INTRON [Suspect]
     Indication: HEPATITIS C
     Dosage: 100 MCG; QW; SC; 50 MCG; QW; SC
     Route: 058
     Dates: start: 20080620, end: 20081003
  2. PEG-INTRON [Suspect]
     Indication: HEPATITIS C
     Dosage: 100 MCG; QW; SC; 50 MCG; QW; SC
     Route: 058
     Dates: start: 20081010, end: 20081107
  3. REBETOL [Suspect]
     Indication: HEPATITIS C
     Dosage: 800 MG; QD; PO; 400 MG; QD; PO
     Route: 048
     Dates: start: 20081010, end: 20081113
  4. REBETOL [Suspect]
     Indication: HEPATITIS C
     Dosage: 800 MG; QD; PO; 400 MG; QD; PO
     Route: 048
     Dates: start: 20080620

REACTIONS (3)
  - ASTHMA [None]
  - CHRONIC INFLAMMATORY DEMYELINATING POLYRADICULONEUROPATHY [None]
  - COUGH [None]
